FAERS Safety Report 6908267-2 (Version None)
Quarter: 2010Q3

REPORT INFORMATION
  Report Type: 
  Country: None (occurrence: None)
  Receive Date: 20100805
  Receipt Date: 20100727
  Transmission Date: 20110219
  Serious: Yes (Life-Threatening, Other)
  Sender: FDA-Public Use
  Company Number: JP-ROCHE-715503

PATIENT
  Sex: Female

DRUGS (14)
  1. ACTEMRA [Suspect]
     Indication: RHEUMATOID ARTHRITIS
     Route: 041
     Dates: start: 20090120, end: 20090120
  2. ACTEMRA [Suspect]
     Route: 041
     Dates: start: 20090217, end: 20090217
  3. ACTEMRA [Suspect]
     Route: 041
     Dates: start: 20090310, end: 20090310
  4. ACTEMRA [Suspect]
     Route: 041
     Dates: start: 20090406, end: 20090406
  5. ACTEMRA [Suspect]
     Route: 041
     Dates: start: 20090430, end: 20090430
  6. ACTEMRA [Suspect]
     Route: 041
     Dates: start: 20090526, end: 20090526
  7. ACTEMRA [Suspect]
     Route: 041
     Dates: start: 20090623, end: 20090623
  8. ACTEMRA [Suspect]
     Route: 041
     Dates: start: 20090721
  9. RHEUMATREX [Concomitant]
     Route: 048
  10. PREDONINE [Concomitant]
     Route: 048
  11. VOLTAREN [Concomitant]
     Route: 048
  12. RABEPRAZOLE SODIUM [Concomitant]
     Dosage: DRUG REPORTED AS: PARIET(SODIUM RABEPRAZOLE)
     Route: 048
  13. VASOLAN [Concomitant]
     Route: 048
  14. BONALON [Concomitant]
     Dosage: DRUG: BONALON 35MG(ALENDRONATE SODIUM HYDRATE)
     Route: 048

REACTIONS (3)
  - DEEP VEIN THROMBOSIS POSTOPERATIVE [None]
  - LARGE INTESTINE PERFORATION [None]
  - PERITONITIS [None]
